FAERS Safety Report 9345676 (Version 2)
Quarter: 2013Q3

REPORT INFORMATION
  Report Type: Report from Study
  Country: US (occurrence: US)
  Receive Date: 20130613
  Receipt Date: 20130827
  Transmission Date: 20140515
  Serious: No
  Sender: FDA-Public Use
  Company Number: PHEH2013US001814

PATIENT
  Age: 48 Year
  Sex: Female

DRUGS (4)
  1. EXTAVIA [Suspect]
     Indication: MULTIPLE SCLEROSIS
     Dosage: 0.187 MG, QOD
     Route: 058
     Dates: start: 20121213
  2. EXTAVIA [Suspect]
     Dosage: 0.25 MG, QOD
     Route: 058
  3. EXTAVIA [Suspect]
     Dosage: 1 ML, QOD
     Route: 058
     Dates: start: 20121127
  4. EXTAVIA [Suspect]
     Dosage: 0.25 MG, QOD
     Route: 058

REACTIONS (11)
  - Injection site erythema [Recovering/Resolving]
  - Headache [Recovering/Resolving]
  - Fall [Unknown]
  - Gait disturbance [Unknown]
  - Feeling abnormal [Not Recovered/Not Resolved]
  - Migraine [Recovering/Resolving]
  - Clumsiness [Unknown]
  - White blood cell count decreased [Not Recovered/Not Resolved]
  - Injection site bruising [Recovering/Resolving]
  - Injection site pain [Not Recovered/Not Resolved]
  - Injection site scab [Recovering/Resolving]
